FAERS Safety Report 9802109 (Version 2)
Quarter: 2014Q1

REPORT INFORMATION
  Report Type: Spontaneous
  Country: US (occurrence: US)
  Receive Date: 20140107
  Receipt Date: 20140107
  Transmission Date: 20141002
  Serious: Yes (Hospitalization)
  Sender: FDA-Public Use
  Company Number: US-B.I. PHARMACEUTICALS,INC./RIDGEFIELD-2013-BI-21988BP

PATIENT
  Age: 72 Year
  Sex: Male
  Weight: 92.99 kg

DRUGS (5)
  1. PRADAXA [Suspect]
     Indication: ATRIAL FIBRILLATION
     Dosage: 150 MG
     Dates: start: 20110928, end: 20121031
  2. DIGOXIN [Concomitant]
     Dosage: 25 MCG
  3. LASIX [Concomitant]
     Dosage: 80 MG
     Dates: start: 20110707
  4. AMILORIDE [Concomitant]
     Dosage: 5 MG
  5. BENAZEPRIL [Concomitant]
     Dates: start: 2009

REACTIONS (2)
  - Rectal haemorrhage [Unknown]
  - Haemorrhagic anaemia [Unknown]
